FAERS Safety Report 19374965 (Version 1)
Quarter: 2021Q2

REPORT INFORMATION
  Report Type: Report from Study
  Country: JP (occurrence: JP)
  Receive Date: 20210604
  Receipt Date: 20210604
  Transmission Date: 20210717
  Serious: Yes (Other)
  Sender: FDA-Public Use
  Company Number: JP-JNJFOC-A-CH2017-156320

PATIENT
  Age: 74 Year
  Sex: Female

DRUGS (17)
  1. TAKEPRON [Concomitant]
     Active Substance: LANSOPRAZOLE
     Indication: GASTROOESOPHAGEAL REFLUX DISEASE
  2. U?PASTA [Concomitant]
     Indication: SKIN ULCER
  3. JUVELA [Concomitant]
     Active Substance: .ALPHA.-TOCOPHEROL\RETINOL
     Indication: SKIN ULCER
  4. TRACLEER [Suspect]
     Active Substance: BOSENTAN
     Dosage: 62.5 MG, QD
     Route: 048
     Dates: start: 20161122, end: 20161226
  5. AZUNOL [Concomitant]
     Indication: PROPHYLAXIS
  6. TRACLEER [Suspect]
     Active Substance: BOSENTAN
     Indication: SCLERODERMA ASSOCIATED DIGITAL ULCER
     Dosage: 62.5 MG, BID
     Route: 048
     Dates: start: 20161227, end: 20170130
  7. GEBEN [Concomitant]
     Active Substance: SILVER SULFADIAZINE
     Indication: SKIN ULCER
  8. RECLAST [Concomitant]
     Active Substance: ZOLEDRONIC ACID
     Indication: OSTEOPOROSIS
  9. HIRUDOID [Concomitant]
     Active Substance: GLYCOSAMINOGLYCANS
     Indication: SKIN ULCER
  10. CALONAL [Concomitant]
     Active Substance: ACETAMINOPHEN
     Indication: PAIN PROPHYLAXIS
  11. REVATIO [Concomitant]
     Active Substance: SILDENAFIL CITRATE
     Indication: PULMONARY HYPERTENSION
  12. ACTONEL [Concomitant]
     Active Substance: RISEDRONATE SODIUM
     Indication: OSTEOPOROSIS
  13. LOCOID [Concomitant]
     Active Substance: HYDROCORTISONE BUTYRATE
     Indication: SEBORRHOEIC DERMATITIS
  14. TRACLEER [Suspect]
     Active Substance: BOSENTAN
     Dosage: 62.5 MG, QD
     Route: 048
     Dates: start: 20170131, end: 20190204
  15. ALFAROL [Concomitant]
     Active Substance: ALFACALCIDOL
     Indication: OSTEOPOROSIS
  16. JUVELA N [Concomitant]
     Active Substance: TOCOPHERYL NICOTINATE, D-.ALPHA.
     Indication: SKIN ULCER
  17. PROSTANDIN [Concomitant]
     Indication: SKIN ULCER

REACTIONS (8)
  - Haemoptysis [Recovering/Resolving]
  - Therapeutic embolisation [Recovering/Resolving]
  - Pruritus [Recovering/Resolving]
  - Skin infection [Recovered/Resolved]
  - Erythema [Recovered/Resolved]
  - Diarrhoea [Recovered/Resolved]
  - Skin erosion [Recovered/Resolved]
  - Concomitant disease aggravated [Recovering/Resolving]

NARRATIVE: CASE EVENT DATE: 20170117
